FAERS Safety Report 9269097 (Version 2)
Quarter: 2013Q2

REPORT INFORMATION
  Report Type: Spontaneous
  Country: PT (occurrence: PT)
  Receive Date: 20130501
  Receipt Date: 20130513
  Transmission Date: 20140414
  Serious: Yes (Death)
  Sender: FDA-Public Use
  Company Number: 1689889

PATIENT
  Age: 58 Year
  Sex: Female
  Weight: 105 kg

DRUGS (7)
  1. DOCETAXEL [Suspect]
     Indication: BREAST CANCER
     Dosage: 150 MG MILLIGRAM(S), CYCLICAL, INTRAVENOUS
     Route: 042
     Dates: start: 20130201, end: 20130222
  2. DOXORUBICIN [Suspect]
     Indication: BREAST CANCER
     Dosage: 100 MG MILLIGRAM(S), CYCLICAL, INTRAVENOUS
     Route: 042
     Dates: start: 20130201, end: 20130222
  3. GRANISETRON [Concomitant]
  4. (DEXAMETHASONE) [Concomitant]
  5. (CYCLOPHOSPHAMIDE) [Concomitant]
  6. (APREPITANT) [Concomitant]
  7. (NACL) [Concomitant]

REACTIONS (5)
  - Asthenia [None]
  - Malaise [None]
  - Hyperhidrosis [None]
  - Fatigue [None]
  - Cardiac arrest [None]
